FAERS Safety Report 13271340 (Version 1)
Quarter: 2017Q1

REPORT INFORMATION
  Report Type: Spontaneous
  Country: DE (occurrence: DE)
  Receive Date: 20170226
  Receipt Date: 20170226
  Transmission Date: 20170428
  Serious: Yes (Other)
  Sender: FDA-Public Use
  Company Number: DE-AMGEN-DEUSP2017005359

PATIENT
  Age: 80 Year
  Sex: Male
  Weight: 63 kg

DRUGS (5)
  1. HELIXOR A [Concomitant]
     Dosage: 50 MG, Q2WK
     Dates: start: 2013
  2. DRONABINOL. [Concomitant]
     Active Substance: DRONABINOL
     Indication: PAIN
     Dosage: 2 TO 3 DROPS, QD
     Dates: start: 20160929
  3. NOVAMINSULFON [Concomitant]
     Active Substance: METAMIZOLE
     Indication: PAIN
  4. XGEVA [Suspect]
     Active Substance: DENOSUMAB
     Indication: METASTASES TO BONE
     Dosage: UNK
     Route: 065
     Dates: start: 20160727, end: 20160825
  5. XGEVA [Suspect]
     Active Substance: DENOSUMAB
     Indication: PROSTATE CANCER

REACTIONS (5)
  - Tooth disorder [Not Recovered/Not Resolved]
  - Myalgia [Unknown]
  - Impaired healing [Not Recovered/Not Resolved]
  - Nervous system disorder [Unknown]
  - Purulence [Unknown]

NARRATIVE: CASE EVENT DATE: 201612
